FAERS Safety Report 19031859 (Version 3)
Quarter: 2021Q2

REPORT INFORMATION
  Report Type: Spontaneous
  Country: US (occurrence: US)
  Receive Date: 20210319
  Receipt Date: 20210621
  Transmission Date: 20210717
  Serious: Yes (Other)
  Sender: FDA-Public Use
  Company Number: US-PFIZER INC-2021281069

PATIENT
  Sex: Female

DRUGS (1)
  1. ZOLOFT [Suspect]
     Active Substance: SERTRALINE HYDROCHLORIDE
     Dosage: UNK

REACTIONS (6)
  - Feeling abnormal [Unknown]
  - Suicidal ideation [Unknown]
  - Crying [Unknown]
  - Therapeutic product effect delayed [Unknown]
  - Nausea [Unknown]
  - Withdrawal syndrome [Unknown]
